FAERS Safety Report 8185185-6 (Version None)
Quarter: 2012Q1

REPORT INFORMATION
  Report Type: 
  Country: None (occurrence: None)
  Receive Date: 20120305
  Receipt Date: 20120222
  Transmission Date: 20120608
  Serious: Yes (Hospitalization, Other)
  Sender: FDA-Public Use
  Company Number: PHHY2011US65501

PATIENT
  Sex: Male
  Weight: 154 kg

DRUGS (14)
  1. MORPHINE [Concomitant]
     Dosage: UNK UKN, UNK
  2. OXYCODONE HCL [Concomitant]
     Dosage: UNK UKN, UNK
  3. MS CONTIN [Concomitant]
  4. OXYCONTIN [Concomitant]
     Dosage: UNK UKN, UNK
  5. BACLOFEN [Concomitant]
     Dosage: UNK UKN, UNK
  6. PROTONIX [Concomitant]
     Dosage: UNK UKN, UNK
  7. IMIPRAMINE [Concomitant]
     Dosage: UNK UKN, UNK
  8. VITAMIN D [Concomitant]
  9. ZOFRAN [Concomitant]
  10. GABAPENTIN [Concomitant]
  11. EXTAVIA [Suspect]
     Indication: MULTIPLE SCLEROSIS
     Dosage: 250 UG, QOD
     Route: 058
     Dates: start: 20110706, end: 20120201
  12. VANCOMYCIN [Concomitant]
     Dosage: UNK UKN, UNK
  13. ACIDOPHILUS [Concomitant]
  14. ZANAFLEX [Concomitant]

REACTIONS (10)
  - JOINT LOCK [None]
  - ABDOMINAL PAIN [None]
  - ABDOMINAL DISTENSION [None]
  - GASTROINTESTINAL DISORDER [None]
  - CLOSTRIDIAL INFECTION [None]
  - MUSCLE SPASMS [None]
  - OEDEMA PERIPHERAL [None]
  - AGITATION [None]
  - MULTIPLE SCLEROSIS [None]
  - URINARY INCONTINENCE [None]
